FAERS Safety Report 18479976 (Version 1)
Quarter: 2020Q4

REPORT INFORMATION
  Report Type: Spontaneous
  Country: US (occurrence: US)
  Receive Date: 20201108
  Receipt Date: 20201108
  Transmission Date: 20210114
  Serious: Yes (Hospitalization)
  Sender: FDA-Public Use
  Company Number: None

PATIENT
  Age: 71 Year
  Sex: Male
  Weight: 90.7 kg

DRUGS (8)
  1. OXYCODONE 10MG [Concomitant]
     Active Substance: OXYCODONE
  2. ACYCLOVIR 200MG [Concomitant]
  3. ASPIRIN 81MG CHEWABLE [Concomitant]
  4. ATORVASTATIN 10MG [Concomitant]
     Active Substance: ATORVASTATIN
  5. LORAZEPAM 0.5MG [Concomitant]
     Active Substance: LORAZEPAM
  6. LOSARTAN 25MG [Concomitant]
     Active Substance: LOSARTAN
  7. MULTIVITAMIN [Concomitant]
     Active Substance: VITAMINS
  8. BORTEZOMIB. [Suspect]
     Active Substance: BORTEZOMIB
     Indication: PLASMA CELL MYELOMA IN REMISSION
     Dosage: ?          OTHER FREQUENCY:EVERY TWO WEEKS;?
     Route: 058
     Dates: start: 20200818

REACTIONS (11)
  - Myalgia [None]
  - Loss of personal independence in daily activities [None]
  - Fatigue [None]
  - Neuropathy peripheral [None]
  - Deafness [None]
  - Spinal osteoarthritis [None]
  - Subdural haematoma [None]
  - Headache [None]
  - Musculoskeletal pain [None]
  - Pain in extremity [None]
  - Gait disturbance [None]

NARRATIVE: CASE EVENT DATE: 20201023
